FAERS Safety Report 7035692-4 (Version None)
Quarter: 2010Q4

REPORT INFORMATION
  Report Type: 
  Country: None (occurrence: None)
  Receive Date: 20101008
  Receipt Date: 20100927
  Transmission Date: 20110411
  Serious: Yes (Other)
  Sender: FDA-Public Use
  Company Number: BR-PFIZER INC-2010122903

PATIENT
  Sex: Female

DRUGS (2)
  1. NEURONTIN [Suspect]
     Dosage: 300 MG, UNK
     Route: 048
     Dates: start: 20100101
  2. GABAPENTIN [Suspect]
     Dosage: UNK
     Route: 048

REACTIONS (2)
  - HYPERSOMNIA [None]
  - LISTLESS [None]
